FAERS Safety Report 21246575 (Version 2)
Quarter: 2022Q4

REPORT INFORMATION
  Report Type: Spontaneous
  Country: CA (occurrence: CA)
  Receive Date: 20220824
  Receipt Date: 20221003
  Transmission Date: 20230113
  Serious: Yes (Other)
  Sender: FDA-Public Use
  Company Number: CA-CELLTRION INC.-2021CA011535

PATIENT

DRUGS (16)
  1. INFLECTRA [Suspect]
     Active Substance: INFLIXIMAB-DYYB
     Indication: Crohn^s disease
     Dosage: 1100 MG, WEEK 0 INDUCTION
     Route: 042
  2. INFLECTRA [Suspect]
     Active Substance: INFLIXIMAB-DYYB
     Dosage: 1100 MG, EVERY 8 WEEKS
     Route: 042
     Dates: start: 20210702
  3. INFLECTRA [Suspect]
     Active Substance: INFLIXIMAB-DYYB
     Dosage: 1100 MG, FREQUENCY: 6 WEEKS
     Route: 042
     Dates: start: 20210702
  4. INFLECTRA [Suspect]
     Active Substance: INFLIXIMAB-DYYB
     Dosage: 10 MG/KG
     Route: 042
     Dates: start: 202107
  5. INFLECTRA [Suspect]
     Active Substance: INFLIXIMAB-DYYB
     Dosage: 1100 MG, EVERY 8 WEEKS
     Route: 042
     Dates: start: 20210812
  6. INFLECTRA [Suspect]
     Active Substance: INFLIXIMAB-DYYB
     Dosage: 1100 MG, EVERY 8 WEEKS
     Route: 042
     Dates: start: 20211007
  7. INFLECTRA [Suspect]
     Active Substance: INFLIXIMAB-DYYB
     Dosage: 1100 MG, EVERY 8 WEEKS
     Route: 042
     Dates: start: 20211202
  8. INFLECTRA [Suspect]
     Active Substance: INFLIXIMAB-DYYB
     Dosage: 1100 MG, EVERY 8 WEEKS
     Route: 042
     Dates: start: 20220324
  9. INFLECTRA [Suspect]
     Active Substance: INFLIXIMAB-DYYB
     Dosage: 1100 MG, EVERY 8 WEEKS
     Route: 042
     Dates: start: 20220519
  10. INFLECTRA [Suspect]
     Active Substance: INFLIXIMAB-DYYB
     Dosage: 1100 MG, EVERY 6 WEEKS
     Route: 042
  11. INFLECTRA [Suspect]
     Active Substance: INFLIXIMAB-DYYB
     Dosage: 1100 MG, EVERY 6 WEEKS
     Route: 042
     Dates: start: 20220711
  12. ASACOL [Concomitant]
     Active Substance: MESALAMINE
     Indication: Crohn^s disease
     Dosage: 2400 MG
     Route: 048
  13. PREDNISONE [Concomitant]
     Active Substance: PREDNISONE
     Indication: Immunosuppressant drug therapy
     Dosage: 40 MG, DAILY
     Route: 048
  14. PREDNISONE [Concomitant]
     Active Substance: PREDNISONE
     Dosage: 20 MG, DAILY
     Route: 048
  15. VITAMIN B12 [Concomitant]
     Active Substance: CYANOCOBALAMIN
     Dosage: 1000 MCG
     Route: 065
  16. VITAMIN D3 [Concomitant]
     Active Substance: CHOLECALCIFEROL
     Dosage: 4000 IU, OD
     Route: 048

REACTIONS (17)
  - Condition aggravated [Not Recovered/Not Resolved]
  - Faecal calprotectin increased [Unknown]
  - Off label use [Unknown]
  - Off label use [Unknown]
  - Off label use [Unknown]
  - Therapeutic response shortened [Unknown]
  - Intentional product use issue [Unknown]
  - Inappropriate schedule of product administration [Unknown]
  - Weight increased [Unknown]
  - Alopecia [Unknown]
  - Blepharitis [Unknown]
  - Suspected COVID-19 [Unknown]
  - Mole excision [Unknown]
  - Loss of personal independence in daily activities [Unknown]
  - Gastroenteritis [Unknown]
  - Anorectal disorder [Unknown]
  - Colitis [Unknown]

NARRATIVE: CASE EVENT DATE: 20210101
